FAERS Safety Report 21149371 (Version 1)
Quarter: 2022Q3

REPORT INFORMATION
  Report Type: Spontaneous
  Country: US (occurrence: US)
  Receive Date: 20220729
  Receipt Date: 20220729
  Transmission Date: 20221026
  Serious: No
  Sender: FDA-Public Use
  Company Number: US-NOVOPROD-924162

PATIENT
  Sex: Female

DRUGS (1)
  1. OZEMPIC [Suspect]
     Active Substance: SEMAGLUTIDE
     Indication: Type 2 diabetes mellitus
     Dosage: 1 MG
     Route: 065
     Dates: start: 202202, end: 20220524

REACTIONS (5)
  - Eosinophil count increased [Unknown]
  - Peripheral swelling [Unknown]
  - Joint swelling [Unknown]
  - Fluid retention [Unknown]
  - Nausea [Unknown]
